FAERS Safety Report 9017078 (Version 2)
Quarter: 2013Q2

REPORT INFORMATION
  Report Type: Report from Study
  Country: CA (occurrence: CA)
  Receive Date: 20130117
  Receipt Date: 20130502
  Transmission Date: 20140414
  Serious: Yes (Death)
  Sender: FDA-Public Use
  Company Number: PHHY2013CA002837

PATIENT
  Age: 71 Year
  Sex: Female

DRUGS (2)
  1. CLOZARIL [Suspect]
     Dosage: UNK
     Dates: start: 20040108
  2. CLOZARIL [Suspect]
     Dosage: UNK
     Dates: start: 20121204

REACTIONS (1)
  - Death [Fatal]
